FAERS Safety Report 21426669 (Version 1)
Quarter: 2022Q4

REPORT INFORMATION
  Report Type: Spontaneous
  Country: US (occurrence: US)
  Receive Date: 20221008
  Receipt Date: 20221008
  Transmission Date: 20230113
  Serious: Yes (Disabling, Other)
  Sender: FDA-Public Use
  Company Number: US-PURDUE-USA-2020-0194672

PATIENT
  Sex: Female

DRUGS (6)
  1. DILAUDID [Suspect]
     Active Substance: HYDROMORPHONE HYDROCHLORIDE
     Indication: Hernia
     Dosage: UNKNOWN
     Route: 048
     Dates: start: 2009
  2. HYDROCODONE BITARTRATE AND ACETAMINOPHEN [Suspect]
     Active Substance: ACETAMINOPHEN\HYDROCODONE BITARTRATE
     Indication: Hernia
     Dosage: UNKNOWN
     Route: 048
     Dates: start: 2009
  3. ACETAMINOPHEN\OXYCODONE HYDROCHLORIDE [Suspect]
     Active Substance: ACETAMINOPHEN\OXYCODONE HYDROCHLORIDE
     Indication: Hernia
     Dosage: UNKNOWN
     Route: 048
     Dates: start: 2009
  4. PERCOCET [Suspect]
     Active Substance: ACETAMINOPHEN\OXYCODONE HYDROCHLORIDE
     Indication: Hernia
     Dosage: UNKNOWN
     Route: 065
     Dates: start: 2009
  5. FENTANYL [Suspect]
     Active Substance: FENTANYL
     Indication: Hernia
     Dosage: UNKNOWN
     Route: 061
     Dates: start: 2009
  6. NORCO [Suspect]
     Active Substance: ACETAMINOPHEN\HYDROCODONE BITARTRATE
     Indication: Hernia
     Dosage: UNKNOWN
     Route: 065
     Dates: start: 2009

REACTIONS (1)
  - Drug dependence [Unknown]
